FAERS Safety Report 8517036 (Version 5)
Quarter: 2012Q4

REPORT INFORMATION
  Report Type: Report from Study
  Country: JP (occurrence: JP)
  Receive Date: 20120417
  Receipt Date: 20121127
  Transmission Date: 20130627
  Serious: Yes (Other)
  Sender: FDA-Public Use
  Company Number: PHHY2012JP031714

PATIENT
  Age: 69 Year
  Sex: Female
  Weight: 45 kg

DRUGS (8)
  1. AFINITOR [Suspect]
     Indication: METASTATIC RENAL CELL CARCINOMA
     Dosage: 10 mg, daily
     Route: 048
     Dates: start: 20120222, end: 20120413
  2. AFINITOR [Suspect]
     Dosage: 5 mg, daily
     Route: 048
     Dates: start: 20120515, end: 20120713
  3. INTERFERON ALFA [Concomitant]
     Indication: METASTATIC RENAL CELL CARCINOMA
     Dosage: 6000000 IU, UNK
     Dates: start: 20090611, end: 20100614
  4. TECELEUKIN [Concomitant]
     Indication: METASTATIC RENAL CELL CARCINOMA
     Dosage: 750000 IU, UNK
     Dates: start: 20100705, end: 20110506
  5. SORAFENIB TOSILATE [Concomitant]
     Indication: METASTATIC RENAL CELL CARCINOMA
     Dosage: 800 mg, UNK
     Route: 048
     Dates: start: 20110509
  6. MICARDIS [Concomitant]
     Indication: PROPHYLAXIS
     Dosage: 20 mg, UNK
     Route: 048
     Dates: start: 20120222, end: 20120308
  7. FAMOTIDINE [Concomitant]
     Indication: PROPHYLAXIS
     Dosage: 20 mg, UNK
     Route: 048
     Dates: start: 20120222, end: 20120713
  8. CELECOX [Concomitant]
     Indication: METASTATIC RENAL CELL CARCINOMA
     Dosage: 200 mg
     Route: 048
     Dates: start: 20120702, end: 20120713

REACTIONS (2)
  - Retinal vein occlusion [Recovering/Resolving]
  - Visual acuity reduced [Not Recovered/Not Resolved]
